FAERS Safety Report 7828406-9 (Version None)
Quarter: 2011Q4

REPORT INFORMATION
  Report Type: 
  Country: None (occurrence: None)
  Receive Date: 20111020
  Receipt Date: 20111017
  Transmission Date: 20120403
  Serious: No
  Sender: FDA-Public Use
  Company Number: US-PFIZER INC-2011248647

PATIENT
  Sex: Male

DRUGS (1)
  1. SUTENT [Suspect]
     Indication: RENAL CANCER
     Dosage: 50 MG, 1X/DAY
     Dates: start: 20111005

REACTIONS (4)
  - DECREASED APPETITE [None]
  - PYREXIA [None]
  - INFLUENZA LIKE ILLNESS [None]
  - ASTHENIA [None]
